FAERS Safety Report 24580914 (Version 2)
Quarter: 2024Q4

REPORT INFORMATION
  Report Type: Spontaneous
  Country: ES (occurrence: ES)
  Receive Date: 20241105
  Receipt Date: 20241127
  Transmission Date: 20250115
  Serious: Yes (Other)
  Sender: TEVA
  Company Number: ES-TEVA-VS-3260402

PATIENT
  Age: 61 Year
  Sex: Male

DRUGS (5)
  1. CARBOPLATIN [Suspect]
     Active Substance: CARBOPLATIN
     Indication: Squamous cell carcinoma of head and neck
     Route: 065
  2. NIVOLUMAB [Suspect]
     Active Substance: NIVOLUMAB
     Indication: Squamous cell carcinoma of head and neck
     Route: 065
     Dates: start: 201702
  3. PACLITAXEL [Suspect]
     Active Substance: PACLITAXEL
     Indication: Squamous cell carcinoma of head and neck
     Route: 065
  4. CETUXIMAB [Suspect]
     Active Substance: CETUXIMAB
     Indication: Squamous cell carcinoma of head and neck
     Dosage: LOADING DOSE
     Route: 065
  5. CETUXIMAB [Suspect]
     Active Substance: CETUXIMAB
     Indication: Squamous cell carcinoma of head and neck
     Route: 065

REACTIONS (3)
  - Drug ineffective [Unknown]
  - Drug resistance [Unknown]
  - Anaemia [Unknown]
